FAERS Safety Report 7084677-0 (Version None)
Quarter: 2010Q4

REPORT INFORMATION
  Report Type: 
  Country: None (occurrence: None)
  Receive Date: 20101104
  Receipt Date: 20101021
  Transmission Date: 20110411
  Serious: Yes (Death, Hospitalization)
  Sender: FDA-Public Use
  Company Number: US-AMGEN GMBH-QUU443881

PATIENT

DRUGS (15)
  1. NPLATE [Suspect]
     Indication: IDIOPATHIC THROMBOCYTOPENIC PURPURA
     Dosage: UNK UNK, UNK
     Dates: start: 20090327
  2. AMLODIPINE BESYLATE [Concomitant]
     Dosage: UNK UNK, UNK
     Route: 048
  3. AMINOCAPROIC ACID [Concomitant]
     Dosage: 2000 MG, BID
     Route: 048
  4. ATORVASTATIN CALCIUM [Concomitant]
     Dosage: 10 MG, QD
     Route: 048
  5. VALSARTAN [Concomitant]
     Dosage: 80 MG, QD
     Route: 048
  6. ACETAMINOPHEN AND CODEINE PHOSPHATE [Concomitant]
     Dosage: UNK UNK, UNK
     Route: 048
  7. SERTRALINE HYDROCHLORIDE [Concomitant]
     Dosage: 50 MG, QD
     Route: 048
  8. ACETAMINOPHEN [Concomitant]
     Dosage: 1000 MG, PRN
     Route: 048
  9. ZOLPIDEM TARTRATE [Concomitant]
     Dosage: 5 MG, PRN
  10. BRIMONIDINE TARTRATE [Concomitant]
  11. DOCUSATE SODIUM [Concomitant]
     Dosage: 100 MG, PRN
  12. MULTI-VITAMINS [Concomitant]
     Dosage: UNK UNK, UNK
     Route: 048
  13. ESOMEPRAZOLE MAGNESIUM [Concomitant]
     Dosage: 40 MG, QD
     Route: 048
  14. DARBEPOETIN ALFA [Concomitant]
     Dosage: 200 A?G, Q2WK
  15. PREDNISONE [Concomitant]
     Dosage: 10 MG, PRN
     Route: 048

REACTIONS (3)
  - ASTHENIA [None]
  - DEATH [None]
  - FATIGUE [None]
